FAERS Safety Report 8357197 (Version 4)
Quarter: 2014Q2

REPORT INFORMATION
  Report Type: Spontaneous
  Country: US (occurrence: US)
  Receive Date: 20120127
  Receipt Date: 20140617
  Transmission Date: 20141212
  Serious: Yes (Other)
  Sender: FDA-Public Use
  Company Number: US-PFIZER INC-2012019855

PATIENT
  Age: 59 Year
  Sex: Male
  Weight: 108.84 kg

DRUGS (13)
  1. VIAGRA [Suspect]
     Indication: DYSPNOEA
     Dosage: 50 MG, QD PRN
     Route: 048
     Dates: start: 201109, end: 20111218
  2. WARFARIN [Concomitant]
     Indication: BLOOD DISORDER
     Dosage: 6 MG AND 1 MG, DAILY
  3. METFORMIN [Concomitant]
     Dosage: 500 MG, BID
  4. CARAFATE [Concomitant]
     Indication: GASTROOESOPHAGEAL REFLUX DISEASE
     Dosage: 1 G, BID
  5. OMEPRAZOLE [Concomitant]
     Dosage: 40 MG, ONCE A DAY
  6. NOVOLOG [Concomitant]
     Dosage: 100 UNITS/ML SOLUTION 5UNITS, TID
  7. GABAPENTIN [Concomitant]
     Dosage: 300 MG, TID
  8. CELEBREX [Concomitant]
     Dosage: 200 MG, 2 TIMES A DAY
  9. ANDROGEL [Concomitant]
     Dosage: 1 PUMP TO EACH SHOULDER AREA ONCE A DAY
  10. OXYGEN [Concomitant]
     Dosage: 2.3 L, AS DIRECTED
  11. PERCOCET [Concomitant]
     Indication: PAIN
     Dosage: OXYCODONE HYDROCHLORIDE 10MG/ PARACETAMOL 325MG, QID PRN
  12. AMLODIPINE [Concomitant]
     Indication: BLOOD PRESSURE
     Dosage: 2.5 MG, QD
  13. LANTUS [Concomitant]
     Indication: DIABETES MELLITUS
     Dosage: 100 UNITS/ML, 130 UNITS, QD

REACTIONS (1)
  - Dyspnoea [Not Recovered/Not Resolved]
